FAERS Safety Report 9637483 (Version 1)
Quarter: 2013Q4

REPORT INFORMATION
  Report Type: Spontaneous
  Country: FR (occurrence: FR)
  Receive Date: 20131022
  Receipt Date: 20131022
  Transmission Date: 20140711
  Serious: Yes (Life-Threatening)
  Sender: FDA-Public Use
  Company Number: FR-JNJFOC-20131012565

PATIENT
  Age: 48 Year
  Sex: Female

DRUGS (4)
  1. XARELTO [Suspect]
     Indication: POISONING DELIBERATE
     Route: 048
     Dates: start: 20130903, end: 20130903
  2. FLECAINE [Suspect]
     Indication: POISONING DELIBERATE
     Route: 048
     Dates: start: 20130903, end: 20130903
  3. DEPAKOTE [Concomitant]
     Route: 065
  4. LEVOTHYROX [Concomitant]
     Route: 065

REACTIONS (2)
  - Atrioventricular block complete [Recovering/Resolving]
  - Intentional overdose [Unknown]
